FAERS Safety Report 6202638-8 (Version None)
Quarter: 2009Q2

REPORT INFORMATION
  Report Type: 
  Country: None (occurrence: None)
  Receive Date: 20090526
  Receipt Date: 20090514
  Transmission Date: 20091009
  Serious: Yes (Other)
  Sender: FDA-Public Use
  Company Number: US-ELI_LILLY_AND_COMPANY-US200905003092

PATIENT
  Sex: Female

DRUGS (15)
  1. CYMBALTA [Suspect]
     Indication: NEURALGIA
     Dosage: 30 MG, 2/D
  2. COLACE [Concomitant]
     Dosage: 100 MG, QOD
  3. SENOKOT [Concomitant]
     Dosage: 1 D/F, QOD
  4. MULTI-VITAMIN [Concomitant]
     Dosage: UNK, DAILY (1/D)
  5. CALCIUM WITH VITAMIN D [Concomitant]
     Dosage: 600 MG, 3/D
  6. TRAZODIL [Concomitant]
     Dosage: 100 MG, EACH EVENING
  7. GABAPENTIN [Concomitant]
     Dosage: 1500 MG, DAILY (1/D)
  8. OXYCODONE HCL [Concomitant]
     Dosage: 20 MG, DAILY (1/D)
  9. OXYCODONE HCL [Concomitant]
     Dosage: UNK, AS NEEDED
  10. DIAZEPAM [Concomitant]
     Dosage: 10 MG, EVERY 6 HRS
  11. OXYCODONE WITH APAP [Concomitant]
     Dosage: 1 D/F, AS NEEDED
  12. VITAMIN B COMPLEX CAP [Concomitant]
     Dosage: UNK, EACH EVENING
  13. VITAMIN E [Concomitant]
     Dosage: 400 IU, 2/D
  14. MIRALAX [Concomitant]
     Dosage: UNK, EACH MORNING
  15. VALTREX [Concomitant]
     Indication: ORAL HERPES
     Dosage: UNK, AS NEEDED

REACTIONS (1)
  - INTERVERTEBRAL DISC DEGENERATION [None]
